FAERS Safety Report 6333372-1 (Version None)
Quarter: 2009Q3

REPORT INFORMATION
  Report Type: 
  Country: None (occurrence: None)
  Receive Date: 20090828
  Receipt Date: 20090806
  Transmission Date: 20100115
  Serious: Yes (Hospitalization, Other)
  Sender: FDA-Public Use
  Company Number: US-BAXTER-2008BH010961

PATIENT
  Age: 63 Year
  Sex: Male
  Weight: 81 kg

DRUGS (60)
  1. HEPARIN SODIUM INJECTION [Suspect]
     Indication: PULMONARY VALVE REPLACEMENT
     Route: 042
     Dates: start: 20071101, end: 20071101
  2. HEPARIN SODIUM INJECTION [Suspect]
     Indication: CARDIOPULMONARY BYPASS
     Route: 042
     Dates: start: 20071101, end: 20071101
  3. HEPARIN SODIUM INJECTION [Suspect]
     Route: 042
     Dates: start: 20071101, end: 20071101
  4. HEPARIN SODIUM INJECTION [Suspect]
     Route: 042
     Dates: start: 20071101, end: 20071101
  5. HEPARIN SODIUM INJECTION [Suspect]
     Route: 042
     Dates: start: 20071101, end: 20071101
  6. HEPARIN SODIUM INJECTION [Suspect]
     Route: 042
     Dates: start: 20071101, end: 20071101
  7. HEPARIN SODIUM INJECTION [Suspect]
     Route: 042
     Dates: start: 20071107, end: 20071110
  8. HEPARIN SODIUM INJECTION [Suspect]
     Route: 042
     Dates: start: 20071107, end: 20071110
  9. HEPARIN SODIUM INJECTION [Suspect]
     Route: 058
     Dates: start: 20071109, end: 20071110
  10. HEPARIN SODIUM INJECTION [Suspect]
     Route: 058
     Dates: start: 20071109, end: 20071110
  11. HEPARIN SODIUM INJECTION [Suspect]
     Route: 042
     Dates: start: 20071110, end: 20071110
  12. HEPARIN SODIUM INJECTION [Suspect]
     Route: 042
     Dates: start: 20071110, end: 20071110
  13. VANCOMYCIN [Concomitant]
     Indication: DRUG USE FOR UNKNOWN INDICATION
     Route: 042
     Dates: start: 20071104, end: 20071110
  14. LANOXIN [Concomitant]
     Indication: DRUG USE FOR UNKNOWN INDICATION
     Route: 042
     Dates: start: 20071103
  15. LASIX [Concomitant]
     Indication: DRUG USE FOR UNKNOWN INDICATION
     Route: 042
  16. OXYCODONE [Concomitant]
     Indication: PAIN
     Route: 048
  17. PHYTONADIONE [Concomitant]
     Indication: DRUG USE FOR UNKNOWN INDICATION
     Route: 058
  18. MORPHINE [Concomitant]
     Indication: DRUG USE FOR UNKNOWN INDICATION
     Route: 042
  19. POTASSIUM CHLORIDE [Concomitant]
     Indication: DRUG USE FOR UNKNOWN INDICATION
     Route: 065
  20. LABETALOL HCL [Concomitant]
     Indication: DRUG USE FOR UNKNOWN INDICATION
     Route: 065
  21. ZOSYN [Concomitant]
     Indication: DRUG USE FOR UNKNOWN INDICATION
     Route: 065
     Dates: start: 20071112
  22. HYDROCHLOROTHIAZIDE [Concomitant]
     Indication: DRUG USE FOR UNKNOWN INDICATION
     Route: 048
     Dates: start: 20071107
  23. CEFEPIME [Concomitant]
     Indication: DRUG USE FOR UNKNOWN INDICATION
     Route: 042
     Dates: start: 20071104
  24. DESMOPRESSIN ACETATE [Concomitant]
     Indication: DRUG USE FOR UNKNOWN INDICATION
     Route: 065
     Dates: start: 20071112
  25. FLUCONAZOLE [Concomitant]
     Indication: DRUG USE FOR UNKNOWN INDICATION
     Route: 042
     Dates: start: 20071111
  26. AMLODIPINE [Concomitant]
     Indication: DRUG USE FOR UNKNOWN INDICATION
     Route: 048
     Dates: start: 20071107
  27. BUMETANIDE [Concomitant]
     Indication: DRUG USE FOR UNKNOWN INDICATION
     Route: 042
     Dates: start: 20071106
  28. SPIRONOLACTONE [Concomitant]
     Indication: DRUG USE FOR UNKNOWN INDICATION
     Route: 048
  29. MAGNESIUM SULFATE [Concomitant]
     Indication: DRUG USE FOR UNKNOWN INDICATION
     Route: 042
     Dates: start: 20071102
  30. ESOMEPRAZOLE [Concomitant]
     Indication: DRUG USE FOR UNKNOWN INDICATION
     Route: 065
     Dates: start: 20071104
  31. FENTANYL [Concomitant]
     Indication: PAIN
     Route: 042
     Dates: start: 20071101
  32. ACETAMINOPHEN [Concomitant]
     Indication: DRUG USE FOR UNKNOWN INDICATION
     Route: 065
  33. ALBUTEIN [Concomitant]
     Indication: DRUG USE FOR UNKNOWN INDICATION
     Route: 042
  34. ARANESP [Concomitant]
     Indication: DRUG USE FOR UNKNOWN INDICATION
     Route: 058
  35. ASPIRIN [Concomitant]
     Indication: DRUG USE FOR UNKNOWN INDICATION
     Route: 048
     Dates: start: 20071102
  36. BISACODYL [Concomitant]
     Indication: DRUG USE FOR UNKNOWN INDICATION
     Route: 048
  37. PANTOPRAZOLE SODIUM [Concomitant]
     Indication: DRUG USE FOR UNKNOWN INDICATION
     Route: 048
  38. REGLAN [Concomitant]
     Indication: DRUG USE FOR UNKNOWN INDICATION
     Route: 042
     Dates: start: 20071104
  39. WARFARIN SODIUM [Concomitant]
     Indication: DRUG USE FOR UNKNOWN INDICATION
     Route: 048
     Dates: start: 20071123
  40. WARFARIN SODIUM [Concomitant]
     Route: 048
     Dates: start: 20071124
  41. WARFARIN SODIUM [Concomitant]
     Route: 048
     Dates: start: 20071122
  42. WARFARIN SODIUM [Concomitant]
     Route: 048
     Dates: start: 20071126
  43. METOCLOPRAMIDE [Concomitant]
     Indication: DRUG USE FOR UNKNOWN INDICATION
     Route: 048
  44. ENSURE [Concomitant]
     Dosage: DOSE UNIT:UNKNOWN
     Route: 065
     Dates: start: 20071124
  45. LANTUS [Concomitant]
     Indication: DRUG USE FOR UNKNOWN INDICATION
     Route: 058
     Dates: start: 20071105
  46. LACTULOSE [Concomitant]
     Indication: DRUG USE FOR UNKNOWN INDICATION
     Route: 048
  47. HYDRALAZINE HCL [Concomitant]
     Indication: DRUG USE FOR UNKNOWN INDICATION
     Route: 042
     Dates: start: 20071104
  48. HYDRALAZINE HCL [Concomitant]
     Route: 042
     Dates: start: 20071107
  49. NOVOLOG [Concomitant]
     Indication: DRUG USE FOR UNKNOWN INDICATION
     Route: 058
     Dates: start: 20071104
  50. AMLODIPINE [Concomitant]
     Route: 048
     Dates: start: 20071107
  51. ANGIOMAX [Concomitant]
     Indication: DRUG USE FOR UNKNOWN INDICATION
     Dosage: DOSE UNIT:UNKNOWN
     Route: 042
     Dates: start: 20071113, end: 20071128
  52. SODIUM BICARBONATE IN PLASTIC CONTAINER [Concomitant]
     Indication: DRUG USE FOR UNKNOWN INDICATION
     Dosage: DOSE UNIT:UNKNOWN
     Route: 042
     Dates: start: 20071101
  53. MIDAZOLAM HCL [Concomitant]
     Indication: AGITATION
     Route: 042
     Dates: start: 20071102
  54. HYDROCORTISONE [Concomitant]
     Indication: DRUG USE FOR UNKNOWN INDICATION
     Route: 042
     Dates: start: 20071102
  55. FAMOTIDINE [Concomitant]
     Indication: DRUG USE FOR UNKNOWN INDICATION
     Route: 042
     Dates: start: 20071102
  56. CALCIUM GLUCONATE [Concomitant]
     Indication: DRUG USE FOR UNKNOWN INDICATION
     Route: 042
     Dates: start: 20071103
  57. CALCIUM CHLORIDE [Concomitant]
     Indication: DRUG USE FOR UNKNOWN INDICATION
     Route: 042
     Dates: start: 20071102
  58. HYDROCHLOROTHIAZIDE [Concomitant]
     Route: 065
     Dates: start: 20071107
  59. BISACODYL [Concomitant]
     Route: 054
  60. COLACE DOCUSATE AND OLIVE OIL ENEMA [Concomitant]
     Indication: DRUG USE FOR UNKNOWN INDICATION
     Route: 054

REACTIONS (12)
  - COMA [None]
  - DEEP VEIN THROMBOSIS [None]
  - HEPARIN-INDUCED THROMBOCYTOPENIA [None]
  - HEPATIC FUNCTION ABNORMAL [None]
  - HYPOTENSION [None]
  - JAUNDICE [None]
  - JUGULAR VEIN THROMBOSIS [None]
  - MENTAL STATUS CHANGES [None]
  - PROCEDURAL COMPLICATION [None]
  - RENAL FAILURE ACUTE [None]
  - RESPIRATORY FAILURE [None]
  - SEPSIS [None]
